FAERS Safety Report 5145830-6 (Version None)
Quarter: 2006Q4

REPORT INFORMATION
  Report Type: 
  Country: None (occurrence: None)
  Receive Date: 20061108
  Receipt Date: 20061027
  Transmission Date: 20070319
  Serious: Yes (Other)
  Sender: FDA-Public Use
  Company Number: US-JNJFOC-20061006995

PATIENT
  Sex: Female
  Weight: 78.93 kg

DRUGS (8)
  1. DURAGESIC-100 [Suspect]
     Route: 062
  2. DURAGESIC-100 [Suspect]
     Route: 062
  3. DURAGESIC-100 [Suspect]
     Route: 062
  4. DURAGESIC-100 [Suspect]
     Indication: ABDOMINAL PAIN UPPER
     Route: 062
  5. PANCREASE MT 16 [Concomitant]
     Indication: PANCREATITIS
     Dosage: 3 WITH MEAL
     Route: 048
  6. ZOCOR [Concomitant]
     Indication: BLOOD CHOLESTEROL
     Route: 065
  7. NEXIUM [Concomitant]
     Indication: GASTROOESOPHAGEAL REFLUX DISEASE
     Route: 048
  8. PHENERGAN [Concomitant]
     Indication: NAUSEA
     Route: 065

REACTIONS (4)
  - APPLICATION SITE RASH [None]
  - NAUSEA [None]
  - PANCREATITIS [None]
  - PANCREATITIS CHRONIC [None]
